FAERS Safety Report 15811063 (Version 3)
Quarter: 2022Q1

REPORT INFORMATION
  Report Type: Spontaneous
  Country: FR (occurrence: FR)
  Receive Date: 20190111
  Receipt Date: 20220315
  Transmission Date: 20220423
  Serious: Yes (Life-Threatening, Hospitalization, Other)
  Sender: FDA-Public Use
  Company Number: FR-AUROBINDO-AUR-APL-2018-064088

PATIENT
  Age: 57 Year
  Sex: Male
  Weight: 155 kg

DRUGS (6)
  1. ALPRAZOLAM [Suspect]
     Active Substance: ALPRAZOLAM
     Indication: Suicide attempt
     Dosage: 30 MILLIGRAM
     Route: 048
     Dates: start: 20171117
  2. ARTANE [Suspect]
     Active Substance: TRIHEXYPHENIDYL HYDROCHLORIDE
     Indication: Suicide attempt
     Dosage: 40 DOSAGE FORM
     Route: 048
     Dates: start: 20171117
  3. EXFORGE [Suspect]
     Active Substance: AMLODIPINE BESYLATE\VALSARTAN
     Indication: Suicide attempt
     Dosage: 36 DOSAGE FORM
     Route: 048
     Dates: start: 20171117
  4. RISPERDAL [Suspect]
     Active Substance: RISPERIDONE
     Indication: Suicide attempt
     Dosage: 32 MILLIGRAM
     Route: 048
     Dates: start: 20171117
  5. TRIMEPRAZINE [Suspect]
     Active Substance: TRIMEPRAZINE
     Indication: Suicide attempt
     Dosage: 1 DOSAGE FORM
     Route: 048
     Dates: start: 20171117
  6. LOVENOX [Concomitant]
     Active Substance: ENOXAPARIN SODIUM
     Indication: Thrombosis prophylaxis
     Dosage: 4000 INTERNATIONAL UNIT, ONCE A DAY
     Route: 058

REACTIONS (2)
  - Coma [Recovered/Resolved]
  - Haemodynamic instability [Recovered/Resolved]

NARRATIVE: CASE EVENT DATE: 20171118
